FAERS Safety Report 20047621 (Version 2)
Quarter: 2021Q4

REPORT INFORMATION
  Report Type: Spontaneous
  Country: IN (occurrence: IN)
  Receive Date: 20211109
  Receipt Date: 20211125
  Transmission Date: 20220304
  Serious: Yes (Life-Threatening, Hospitalization)
  Sender: FDA-Public Use
  Company Number: IN-TORRENT-00002949

PATIENT
  Age: 48 Year
  Sex: Male

DRUGS (19)
  1. ESOMEPRAZOLE [Suspect]
     Active Substance: ESOMEPRAZOLE
     Indication: Product used for unknown indication
     Dosage: BD (TWICE A DAY)
     Route: 042
  2. ALBUMIN HUMAN [Concomitant]
     Active Substance: ALBUMIN HUMAN
     Indication: Product used for unknown indication
     Dosage: OVER AND HOUR
     Route: 042
  3. DUOLIN [Concomitant]
     Indication: Product used for unknown indication
     Dosage: NEBULISER
  4. duphalac enema [Concomitant]
     Indication: Product used for unknown indication
     Dosage: TWICE A DAY (BD)
  5. ONDANSETRON HYDROCHLORIDE [Concomitant]
     Active Substance: ONDANSETRON HYDROCHLORIDE
     Indication: Product used for unknown indication
     Dosage: 3 TIMES DAILY (TDS)
     Route: 042
  6. ENTECAVIR [Concomitant]
     Active Substance: ENTECAVIR
     Indication: Product used for unknown indication
     Dosage: THRICE A WEEK
  7. KCL [Concomitant]
     Active Substance: POTASSIUM CHLORIDE
     Indication: Product used for unknown indication
     Dosage: 30 ML KCL WITH 20 CC NS
     Route: 042
  8. Lactihep [Concomitant]
     Indication: Product used for unknown indication
     Dosage: TWICE A DAY (BD)
  9. lacto calamine [Concomitant]
     Indication: Product used for unknown indication
     Dosage: TDS (THRICE A DAY) LOTION
  10. Mero [Concomitant]
     Indication: Product used for unknown indication
     Dosage: TWICE A DAY (BD)
     Route: 042
  11. optineuron [Concomitant]
     Indication: Product used for unknown indication
     Dosage: 1 AMPULE ,TDS (3 TIME A DAY)
     Route: 042
  12. RIBAVIRIN [Concomitant]
     Active Substance: RIBAVIRIN
     Indication: Product used for unknown indication
     Dosage: 1-0-0
     Route: 065
  13. RIFAXIMIN [Concomitant]
     Active Substance: RIFAXIMIN
     Indication: Product used for unknown indication
     Dosage: 1-0-1
  14. shalcal D3 [Concomitant]
     Indication: Product used for unknown indication
     Dosage: 1-0-1
     Route: 065
  15. SODIUM BICARBONATE [Concomitant]
     Active Substance: SODIUM BICARBONATE
     Indication: Product used for unknown indication
     Dosage: VIA INFUSION
  16. TERLIPRESSIN [Concomitant]
     Active Substance: TERLIPRESSIN
     Indication: Product used for unknown indication
     Dosage: ONCE DAILY (QD) WITH 100 CC NORMAL SALINE (NS)
     Route: 042
  17. TIGECYCLINE [Concomitant]
     Active Substance: TIGECYCLINE
     Indication: Product used for unknown indication
     Dosage: WITH 100 CC NS, BD (TWICE A DAY)
     Route: 042
  18. TRENTAL [Concomitant]
     Active Substance: PENTOXIFYLLINE
     Indication: Product used for unknown indication
     Dosage: 1-0-1
  19. VITAMIN K [Concomitant]
     Active Substance: PHYTONADIONE
     Indication: Product used for unknown indication
     Dosage: OD (ONCE DAILY)
     Route: 042

REACTIONS (1)
  - Hypoglycaemia [Not Recovered/Not Resolved]

NARRATIVE: CASE EVENT DATE: 20211022
